FAERS Safety Report 8933049 (Version 1)
Quarter: 2012Q4

REPORT INFORMATION
  Report Type: Spontaneous
  Country: US (occurrence: None)
  Receive Date: 20121127
  Receipt Date: 20121127
  Transmission Date: 20130627
  Serious: Yes (Other)
  Sender: FDA-Public Use
  Company Number: None

PATIENT
  Age: 55 Year
  Sex: Female

DRUGS (10)
  1. LETAIRIS [Suspect]
     Indication: PULMONARY HYPERTENSION SECONDARY
     Route: 048
     Dates: start: 201203, end: 201205
  2. HYDROCODONE/APAP [Concomitant]
  3. SPIRONOLACTONE [Concomitant]
  4. ZOLPIDEM [Concomitant]
  5. KCL [Concomitant]
  6. MORPHINE [Concomitant]
  7. FUROSEMIDE [Concomitant]
  8. CARVEDIOL [Concomitant]
  9. IPRATROPIUM [Concomitant]
  10. ALBUTEROL [Concomitant]

REACTIONS (4)
  - Oedema peripheral [None]
  - Nausea [None]
  - Vomiting [None]
  - Headache [None]
